FAERS Safety Report 18522148 (Version 1)
Quarter: 2020Q4

REPORT INFORMATION
  Report Type: Spontaneous
  Country: US (occurrence: US)
  Receive Date: 20201119
  Receipt Date: 20201119
  Transmission Date: 20210114
  Serious: Yes (Hospitalization)
  Sender: FDA-Public Use
  Company Number: US-009507513-2011USA010343

PATIENT
  Age: 67 Year
  Sex: Male
  Weight: 101.7 kg

DRUGS (7)
  1. TRAMADOL HYDROCHLORIDE. [Concomitant]
     Active Substance: TRAMADOL HYDROCHLORIDE
     Dosage: 50 MILLIGRAM, AS NECESSARY
  2. DIAZEPAM. [Concomitant]
     Active Substance: DIAZEPAM
  3. PRINIVIL [Suspect]
     Active Substance: LISINOPRIL
     Indication: ESSENTIAL HYPERTENSION
     Dates: start: 20091222
  4. SIMVASTATIN. [Concomitant]
     Active Substance: SIMVASTATIN
     Dosage: 20 MILLIGRAM, QD
  5. AMLODIPINE [Concomitant]
     Active Substance: AMLODIPINE BESYLATE
  6. OMEPRAZOLE. [Concomitant]
     Active Substance: OMEPRAZOLE
     Dosage: 20 MILLIGRAM, PRN
  7. MELOXICAM. [Concomitant]
     Active Substance: MELOXICAM

REACTIONS (4)
  - Chest pain [Recovered/Resolved]
  - Oesophagitis [Unknown]
  - Dysphagia [Unknown]
  - Oesophageal stenosis [Unknown]

NARRATIVE: CASE EVENT DATE: 20100204
